FAERS Safety Report 10244925 (Version 2)
Quarter: 2014Q2

REPORT INFORMATION
  Report Type: Spontaneous
  Country: US (occurrence: US)
  Receive Date: 20140618
  Receipt Date: 20140618
  Transmission Date: 20141212
  Serious: No
  Sender: FDA-Public Use
  Company Number: US-GALDERMA-US14000919

PATIENT
  Age: 49 Year
  Sex: Female

DRUGS (2)
  1. MIRVASO (BRIMONIDINE) TOPICAL GEL, 0.33% [Suspect]
     Indication: ERYTHEMA
     Dosage: 0.33%
     Route: 061
     Dates: start: 20131205, end: 20140225
  2. BIONECT [Concomitant]
     Dosage: 0.2%
     Route: 061
     Dates: start: 20131205, end: 20140225

REACTIONS (6)
  - Impetigo [Recovered/Resolved]
  - Bacterial infection [Recovered/Resolved]
  - Skin hyperpigmentation [Not Recovered/Not Resolved]
  - Scab [Recovered/Resolved]
  - Chemical burn of skin [Recovered/Resolved]
  - Dermatitis contact [Recovered/Resolved]
